FAERS Safety Report 14390191 (Version 4)
Quarter: 2021Q4

REPORT INFORMATION
  Report Type: Other
  Country: TR (occurrence: None)
  Receive Date: 20180116
  Receipt Date: 20211208
  Transmission Date: 20220303
  Serious: Yes (Death, Other)
  Sender: FDA-Public Use
  Company Number: TR-ROCHE-2051776

PATIENT
  Age: 42 Year
  Sex: Female

DRUGS (4)
  1. CAPECITABINE [Suspect]
     Active Substance: CAPECITABINE
     Indication: Breast cancer metastatic
     Route: 048
     Dates: end: 201306
  2. LAPATINIB [Concomitant]
     Active Substance: LAPATINIB
     Indication: Metastases to bone
     Dosage: 1250 MG/DAY
  3. LAPATINIB [Concomitant]
     Active Substance: LAPATINIB
     Indication: Breast cancer stage IV
  4. IBANDRONIC ACID [Concomitant]
     Active Substance: IBANDRONIC ACID

REACTIONS (2)
  - Acute myeloid leukaemia [Fatal]
  - Thrombocytopenia [Unknown]

NARRATIVE: CASE EVENT DATE: 20130601
